FAERS Safety Report 15944327 (Version 2)
Quarter: 2019Q1

REPORT INFORMATION
  Report Type: Report from Study
  Country: SA (occurrence: SA)
  Receive Date: 20190211
  Receipt Date: 20190218
  Transmission Date: 20190417
  Serious: Yes (Other)
  Sender: FDA-Public Use
  Company Number: SA-ROCHE-2262350

PATIENT

DRUGS (2)
  1. CISPLATIN. [Suspect]
     Active Substance: CISPLATIN
     Indication: NASOPHARYNGEAL CANCER
     Dosage: ON DAY 1
     Route: 065
  2. CAPECITABINE. [Suspect]
     Active Substance: CAPECITABINE
     Indication: NASOPHARYNGEAL CANCER
     Dosage: 850-1000 MG/M2 DAY 1-14 OF EVERY 3 WEEKS
     Route: 048

REACTIONS (3)
  - Mucosal inflammation [Unknown]
  - Diarrhoea [Unknown]
  - Neutropenia [Unknown]
